FAERS Safety Report 6045582-1 (Version None)
Quarter: 2009Q1

REPORT INFORMATION
  Report Type: 
  Country: None (occurrence: None)
  Receive Date: 20090121
  Receipt Date: 20090116
  Transmission Date: 20090719
  Serious: Yes (Hospitalization)
  Sender: FDA-Public Use
  Company Number: US-GILEAD-2009-0019872

PATIENT
  Sex: Female

DRUGS (8)
  1. LETAIRIS [Suspect]
     Indication: PULMONARY ARTERIAL HYPERTENSION
     Route: 048
     Dates: start: 20070907
  2. COUMADIN [Concomitant]
  3. BUMEX [Concomitant]
  4. PLAQUENIL [Concomitant]
  5. NEURONTIN [Concomitant]
  6. PREDNISONE [Concomitant]
  7. ACTOS [Concomitant]
  8. PERCOCET [Concomitant]

REACTIONS (3)
  - FALL [None]
  - LOWER LIMB FRACTURE [None]
  - PNEUMONIA [None]
